FAERS Safety Report 6688510-8 (Version None)
Quarter: 2010Q2

REPORT INFORMATION
  Report Type: 
  Country: None (occurrence: None)
  Receive Date: 20100420
  Receipt Date: 20100407
  Transmission Date: 20101027
  Serious: Yes (Hospitalization)
  Sender: FDA-Public Use
  Company Number: JP-AMGEN-QUU406372

PATIENT
  Sex: Male

DRUGS (2)
  1. CINACALCET HYDROCHLORIDE [Suspect]
     Indication: DRUG USE FOR UNKNOWN INDICATION
  2. RENAGEL [Suspect]

REACTIONS (1)
  - INTESTINAL PERFORATION [None]
